FAERS Safety Report 4881539-1 (Version None)
Quarter: 2006Q1

REPORT INFORMATION
  Report Type: 
  Country: None (occurrence: None)
  Receive Date: 20060116
  Receipt Date: 20060103
  Transmission Date: 20060701
  Serious: Yes (Hospitalization)
  Sender: FDA-Public Use
  Company Number: FR-GLAXOSMITHKLINE-B0405831A

PATIENT
  Age: 84 Year
  Sex: Female

DRUGS (11)
  1. DEROXAT [Suspect]
     Dosage: 20MG PER DAY
     Route: 048
     Dates: end: 20051020
  2. TRIMETAZIDINE [Suspect]
     Dosage: 1UNIT THREE TIMES PER DAY
     Route: 048
     Dates: end: 20051020
  3. TRIVASTAL [Suspect]
     Dosage: 1UNIT PER DAY
     Route: 048
     Dates: end: 20051020
  4. RISPERDAL [Suspect]
     Dosage: 1.5MG PER DAY
     Route: 048
     Dates: end: 20051020
  5. AMLOR [Suspect]
     Dosage: 1UNIT PER DAY
     Route: 048
     Dates: end: 20051020
  6. TANAKAN [Suspect]
     Dosage: 40MG THREE TIMES PER DAY
     Route: 048
     Dates: end: 20051020
  7. EPHYNAL [Concomitant]
  8. STRESAM [Concomitant]
  9. MEPRONIZINE [Concomitant]
  10. RELVENE [Concomitant]
  11. LECTIL [Concomitant]

REACTIONS (1)
  - FALL [None]
